FAERS Safety Report 6131825-2 (Version None)
Quarter: 2009Q1

REPORT INFORMATION
  Report Type: 
  Country: None (occurrence: None)
  Receive Date: 20090323
  Receipt Date: 20090312
  Transmission Date: 20090719
  Serious: Yes (Death, Life-Threatening, Other)
  Sender: FDA-Public Use
  Company Number: 2007-03391

PATIENT
  Age: 58 Year
  Sex: Male

DRUGS (24)
  1. VELCADE [Suspect]
     Indication: MULTIPLE MYELOMA
     Dosage: 1.80 MG,  INTRAVENOUS
     Route: 042
     Dates: start: 20071005, end: 20071008
  2. SODIUM BICARBONATE [Concomitant]
  3. DOPAMINE HYDROCHLORIDE [Concomitant]
  4. SOLU-MEDROL [Concomitant]
  5. PREDONINE [Concomitant]
  6. FIRSTCIN (CEFOZOPRAN HYDROCHLORIDE) [Concomitant]
  7. LEVOFLOXACIN [Concomitant]
  8. VANCOMYCIN HYDROCHLORIDE [Concomitant]
  9. ELASPOL (SIVELESTAT) [Concomitant]
  10. OMEPRAZOLE [Concomitant]
  11. FUTHAN (NAFAMOSTAT MESILATE) [Concomitant]
  12. NOVOLIN R [Concomitant]
  13. DORMICUM (NITRAZEPAM) [Concomitant]
  14. PLASMA [Concomitant]
  15. RED BLOOD CELLS, CONCENTRATED (RED BLOOD CELLS, CONCENTRATED) [Concomitant]
  16. PLATELETS [Concomitant]
  17. MONILAC (LACTULOSE) [Concomitant]
  18. PANTOL (DEXPANTHENOL) [Concomitant]
  19. FENTANYL CITRATE [Concomitant]
  20. URSO (URSODEOXYCHOLIC ACID) TABLET [Concomitant]
  21. TAKEPRON (LANSOPRAZOLE) TABLET [Concomitant]
  22. ACYCLOVIR [Concomitant]
  23. AMINOLEBAN EN (AMINOACETIC ACID, ALANINE, METHIONINE, PHENYLALANINE, T [Concomitant]
  24. GANCICLOVIR [Concomitant]

REACTIONS (20)
  - ACIDOSIS [None]
  - ACUTE HEPATIC FAILURE [None]
  - ACUTE RESPIRATORY DISTRESS SYNDROME [None]
  - CARDIAC ARREST [None]
  - COAGULATION FACTOR DECREASED [None]
  - HISTIOCYTOSIS HAEMATOPHAGIC [None]
  - HYPOTENSION [None]
  - LARGE INTESTINAL ULCER HAEMORRHAGE [None]
  - MULTI-ORGAN FAILURE [None]
  - PLATELET COUNT DECREASED [None]
  - PNEUMONIA [None]
  - PULMONARY OEDEMA [None]
  - RENAL FAILURE ACUTE [None]
  - RESPIRATORY FAILURE [None]
  - SCROTAL ULCER [None]
  - SHOCK [None]
  - SPUTUM CULTURE POSITIVE [None]
  - STAPHYLOCOCCAL INFECTION [None]
  - STREPTOCOCCAL INFECTION [None]
  - TUMOUR LYSIS SYNDROME [None]
